FAERS Safety Report 4268668-0 (Version None)
Quarter: 2004Q1

REPORT INFORMATION
  Report Type: 
  Country: None (occurrence: None)
  Receive Date: 20040108
  Receipt Date: 20030729
  Transmission Date: 20041129
  Serious: Yes (Other)
  Sender: FDA-Public Use
  Company Number: 200410044BCC

PATIENT
  Age: 49 Year
  Sex: Female
  Weight: 90.7194 kg

DRUGS (3)
  1. BAYER MUSCLE + JOINT CREAM (CAMPHOR/EUCALYPTUS/MENTHOL/METHYL SALICYLA [Suspect]
     Dosage: TOPICAL
     Route: 061
     Dates: start: 20030728
  2. ALBUTEROL [Concomitant]
  3. HIGH BLOOD PRESSURE MEDICINE [Concomitant]

REACTIONS (1)
  - ASTHMA [None]
